FAERS Safety Report 24291549 (Version 1)
Quarter: 2024Q3

REPORT INFORMATION
  Report Type: Spontaneous
  Country: US (occurrence: None)
  Receive Date: 20240906
  Receipt Date: 20240906
  Transmission Date: 20241016
  Serious: No
  Sender: DOMPE FARMACEUTICI
  Company Number: US-FARMAPROD-202308-202309-2785

PATIENT
  Age: 67 Year
  Sex: Female

DRUGS (9)
  1. OXERVATE [Suspect]
     Active Substance: CENEGERMIN-BKBJ
     Indication: Neurotrophic keratopathy
     Route: 047
     Dates: start: 20230914
  2. REFRESH P.M. [Concomitant]
     Active Substance: MINERAL OIL\PETROLATUM
     Dosage: 42.5-57.3%
  3. CYCLOSPORINE [Concomitant]
     Active Substance: CYCLOSPORINE
  4. EYSUVIS [Concomitant]
     Active Substance: LOTEPREDNOL ETABONATE
  5. TRETINOIN [Concomitant]
     Active Substance: TRETINOIN
  6. ASPIRIN [Concomitant]
     Active Substance: ASPIRIN
  7. MULTIVITAMIN 50 PLUS [Concomitant]
  8. FISH OIL [Concomitant]
     Active Substance: FISH OIL
  9. CALCIUM\CHOLECALCIFEROL [Concomitant]
     Active Substance: CALCIUM\CHOLECALCIFEROL
     Dosage: 600 MG-12.5

REACTIONS (5)
  - Product dose omission issue [Unknown]
  - Product administration error [Unknown]
  - Dry eye [Not Recovered/Not Resolved]
  - Vision blurred [Not Recovered/Not Resolved]
  - Eye pain [Not Recovered/Not Resolved]

NARRATIVE: CASE EVENT DATE: 20230901
